FAERS Safety Report 10016892 (Version 2)
Quarter: 2014Q1

REPORT INFORMATION
  Report Type: Report from Study
  Country: DE (occurrence: DE)
  Receive Date: 20140318
  Receipt Date: 20140318
  Transmission Date: 20141002
  Serious: Yes (Hospitalization)
  Sender: FDA-Public Use
  Company Number: DE-ROCHE-1282989

PATIENT
  Age: 45 Year
  Sex: Male
  Weight: 73 kg

DRUGS (4)
  1. MYCOPHENOLATE MOFETIL [Suspect]
     Indication: RENAL TRANSPLANT
     Dosage: 1 DAY, DATE OF LAST DOSE PRIOR TO EVENT 30/AUG/2012
     Route: 048
     Dates: start: 20120804
  2. BASILIXIMAB [Suspect]
     Indication: RENAL TRANSPLANT
     Dosage: DATE OF LAST DOSE PRIOR TO EVENT 08/AUG/2012
     Route: 048
     Dates: start: 20120804
  3. TACROLIMUS [Suspect]
     Indication: RENAL TRANSPLANT
     Dosage: DATE OF LAST DOSE PRIOR TO EVENT 30/AUG/2012
     Route: 048
     Dates: start: 20120804
  4. PREDNISOLONE [Suspect]
     Indication: RENAL TRANSPLANT
     Dosage: DATE OF LAST DOSE PRIOR TO EVENT 11/AUG/2012
     Route: 042
     Dates: start: 20120804

REACTIONS (1)
  - Kidney transplant rejection [Recovered/Resolved]
